FAERS Safety Report 6160419-8 (Version None)
Quarter: 2009Q2

REPORT INFORMATION
  Report Type: 
  Country: None (occurrence: None)
  Receive Date: 20090420
  Receipt Date: 20090416
  Transmission Date: 20091009
  Serious: Yes (Other)
  Sender: FDA-Public Use
  Company Number: BR-JNJFOC-20090403249

PATIENT
  Age: 32 Year
  Sex: Female

DRUGS (2)
  1. TOPIRAMATE [Suspect]
     Indication: MIGRAINE PROPHYLAXIS
     Route: 048
  2. RIVOTRIL [Concomitant]
     Indication: DEPRESSION
     Route: 065

REACTIONS (2)
  - ANGLE CLOSURE GLAUCOMA [None]
  - MYOPIA [None]
